FAERS Safety Report 21823490 (Version 1)
Quarter: 2023Q1

REPORT INFORMATION
  Report Type: Spontaneous
  Country: US (occurrence: None)
  Receive Date: 20230104
  Receipt Date: 20230104
  Transmission Date: 20230418
  Serious: Yes (Death)
  Sender: FDA-Public Use
  Company Number: None

PATIENT
  Age: 62 Year
  Sex: Male

DRUGS (5)
  1. LENALIDOMIDE [Suspect]
     Active Substance: LENALIDOMIDE
     Indication: Plasma cell myeloma
     Dosage: 25 MG ORAL??TAKE 1 CAPSULE BY MOUTH EVERY DAY FOR 14 DAYS, THEN 7 DAYS OFF. TAKE WHOLE WITH WATER AT
     Route: 048
     Dates: start: 20220805, end: 20221206
  2. ACETAZOLAMID CAP [Concomitant]
  3. APAP/CODEINE TAB [Concomitant]
  4. REVLIMID [Concomitant]
     Active Substance: LENALIDOMIDE
  5. VELCADE INJ [Concomitant]

REACTIONS (1)
  - Death [None]

NARRATIVE: CASE EVENT DATE: 20221226
